FAERS Safety Report 6883217-6 (Version None)
Quarter: 2010Q3

REPORT INFORMATION
  Report Type: 
  Country: None (occurrence: None)
  Receive Date: 20100727
  Receipt Date: 20080416
  Transmission Date: 20110219
  Serious: Yes (Hospitalization, Other)
  Sender: FDA-Public Use
  Company Number: US-PFIZER INC-2006084476

PATIENT
  Sex: Male
  Weight: 81.6 kg

DRUGS (4)
  1. CELEBREX [Suspect]
     Indication: BACK PAIN
     Dates: start: 19990101
  2. CELEBREX [Suspect]
     Indication: NECK PAIN
  3. CELEBREX [Suspect]
     Indication: MUSCULOSKELETAL PAIN
  4. BEXTRA [Suspect]
     Indication: VASCULAR OCCLUSION
     Dates: start: 19990101

REACTIONS (1)
  - CORONARY ARTERY OCCLUSION [None]
